FAERS Safety Report 4523454-9 (Version None)
Quarter: 2004Q4

REPORT INFORMATION
  Report Type: 
  Country: None (occurrence: None)
  Receive Date: 20041210
  Receipt Date: 20041203
  Transmission Date: 20050328
  Serious: Yes (Hospitalization)
  Sender: FDA-Public Use
  Company Number: FI-MERCK-0412FIN00004

PATIENT
  Sex: Female

DRUGS (1)
  1. VIOXX [Suspect]
     Indication: AUTOIMMUNE DISORDER
     Route: 048
     Dates: start: 20040101, end: 20040101

REACTIONS (3)
  - ANGINA PECTORIS [None]
  - FATIGUE [None]
  - MALAISE [None]
